FAERS Safety Report 6697692-3 (Version None)
Quarter: 2010Q2

REPORT INFORMATION
  Report Type: 
  Country: None (occurrence: None)
  Receive Date: 20100423
  Receipt Date: 20100409
  Transmission Date: 20101027
  Serious: Yes (Death, Other)
  Sender: FDA-Public Use
  Company Number: 2010EK000008

PATIENT
  Age: 70 Year
  Sex: Male

DRUGS (12)
  1. RETEPLASE (RETEPLASE, RECOMBINANT) [Suspect]
     Indication: THROMBOSIS PROPHYLAXIS
     Dosage: 10 U; X1; IVBOL
     Route: 040
     Dates: start: 20070406, end: 20070406
  2. RETEPLASE (RETEPLASE, RECOMBINANT) [Suspect]
     Indication: THROMBOSIS PROPHYLAXIS
     Dosage: 10 U; X1; IVBOL
     Route: 040
     Dates: start: 20070406, end: 20070406
  3. HEPARIN SODIUM [Suspect]
     Indication: THROMBOSIS PROPHYLAXIS
     Dosage: SEE IMAGE
     Dates: start: 20070406, end: 20070406
  4. HEPARIN SODIUM [Suspect]
     Indication: THROMBOSIS PROPHYLAXIS
     Dosage: SEE IMAGE
     Dates: start: 20070406, end: 20070406
  5. HEPARIN SODIUM [Suspect]
     Indication: THROMBOSIS PROPHYLAXIS
     Dosage: SEE IMAGE
     Dates: start: 20070406, end: 20070406
  6. HEPARIN SODIUM [Suspect]
     Indication: THROMBOSIS PROPHYLAXIS
     Dosage: SEE IMAGE
     Dates: start: 20070406, end: 20070408
  7. HEPARIN SODIUM [Suspect]
     Indication: THROMBOSIS PROPHYLAXIS
     Dosage: SEE IMAGE
     Dates: start: 20070409, end: 20070409
  8. HEPARIN SODIUM [Suspect]
     Indication: THROMBOSIS PROPHYLAXIS
     Dosage: SEE IMAGE
     Dates: start: 20070410, end: 20070410
  9. HEPARIN SODIUM [Suspect]
     Indication: THROMBOSIS PROPHYLAXIS
     Dosage: SEE IMAGE
     Dates: start: 20070416, end: 20070420
  10. HEPARIN SODIUM [Suspect]
     Indication: THROMBOSIS PROPHYLAXIS
     Dosage: SEE IMAGE
     Dates: start: 20070412, end: 20070422
  11. VITAMINS /90003601/ [Concomitant]
  12. INHALER OTC [Concomitant]

REACTIONS (28)
  - ASTHENIA [None]
  - BACTERIAL TEST POSITIVE [None]
  - CANDIDIASIS [None]
  - CARDIAC ARREST [None]
  - CHOLECYSTITIS [None]
  - CORONARY ARTERY BYPASS [None]
  - CORONARY ARTERY DISEASE [None]
  - DIALYSIS [None]
  - ENTEROBACTER INFECTION [None]
  - ENTEROCOCCAL INFECTION [None]
  - ESCHERICHIA INFECTION [None]
  - EXTREMITY NECROSIS [None]
  - GALLBLADDER ENLARGEMENT [None]
  - GENERAL PHYSICAL HEALTH DETERIORATION [None]
  - HAEMODIALYSIS [None]
  - HEPARIN-INDUCED THROMBOCYTOPENIA [None]
  - HEPATIC FAILURE [None]
  - HYPERSENSITIVITY [None]
  - HYPOTENSION [None]
  - ILEUS [None]
  - MALAISE [None]
  - MULTI-ORGAN FAILURE [None]
  - MULTIPLE INJURIES [None]
  - RENAL FAILURE [None]
  - RESPIRATORY FAILURE [None]
  - SEPSIS [None]
  - TOE AMPUTATION [None]
  - VOMITING [None]
